FAERS Safety Report 18305068 (Version 1)
Quarter: 2020Q3

REPORT INFORMATION
  Report Type: Report from Study
  Country: US (occurrence: US)
  Receive Date: 20200923
  Receipt Date: 20200923
  Transmission Date: 20201103
  Serious: Yes (Other)
  Sender: FDA-Public Use
  Company Number: US-BAUSCH-BL-2020-020504

PATIENT
  Age: 50 Year
  Sex: Female

DRUGS (1)
  1. SILIQ [Suspect]
     Active Substance: BRODALUMAB
     Indication: PRODUCT USED FOR UNKNOWN INDICATION
     Dosage: STRENGTH: 210 MG/1.5 ML, STARTED AT THE END OF JUN/EARLY JUL/2020
     Route: 058
     Dates: start: 2020, end: 202008

REACTIONS (3)
  - Ear swelling [Unknown]
  - Neck mass [Unknown]
  - Skin infection [Unknown]

NARRATIVE: CASE EVENT DATE: 202007
